FAERS Safety Report 12131532 (Version 1)
Quarter: 2016Q1

REPORT INFORMATION
  Report Type: Spontaneous
  Country: US (occurrence: None)
  Receive Date: 20160229
  Receipt Date: 20160229
  Transmission Date: 20160526
  Serious: Yes (Hospitalization)
  Sender: FDA-Public Use
  Company Number: None

PATIENT
  Age: 72 Year
  Sex: Female
  Weight: 81.5 kg

DRUGS (2)
  1. COLCHICINE. [Suspect]
     Active Substance: COLCHICINE
     Indication: GOUT
     Route: 048
     Dates: start: 20150203, end: 20150429
  2. ALLOPURINOL. [Suspect]
     Active Substance: ALLOPURINOL
     Indication: GOUT
     Route: 048
     Dates: start: 20150203, end: 20150429

REACTIONS (5)
  - Pancytopenia [None]
  - Toxicity to various agents [None]
  - International normalised ratio increased [None]
  - Drug interaction [None]
  - Renal impairment [None]

NARRATIVE: CASE EVENT DATE: 20150428
